FAERS Safety Report 22614080 (Version 1)
Quarter: 2023Q2

REPORT INFORMATION
  Report Type: Spontaneous
  Country: US (occurrence: US)
  Receive Date: 20230619
  Receipt Date: 20230619
  Transmission Date: 20230721
  Serious: No
  Sender: FDA-Public Use
  Company Number: US-Vifor (International) Inc.-VIT-2023-03865

PATIENT
  Age: 67 Year
  Sex: Female

DRUGS (20)
  1. VELTASSA [Suspect]
     Active Substance: PATIROMER
     Indication: Hyperkalaemia
     Dosage: DISSOLVE CONTENTS OF 1 PACKET INTO 1/3 CUP OF WATER AND DRINK FULL AMOUNT ONCE DAILY
     Route: 048
     Dates: start: 20211228
  2. ASPIRIN [Concomitant]
     Active Substance: ASPIRIN
     Dosage: 81MG EC
  3. BASAGLAR [Concomitant]
     Active Substance: INSULIN GLARGINE
  4. CRESTOR [Concomitant]
     Active Substance: ROSUVASTATIN CALCIUM
  5. FISH OIL [Concomitant]
     Active Substance: FISH OIL
  6. FUROSEMIDE [Concomitant]
     Active Substance: FUROSEMIDE
  7. GABAPENTIN [Concomitant]
     Active Substance: GABAPENTIN
  8. GEMFIBROZIL [Concomitant]
     Active Substance: GEMFIBROZIL
  9. GLIMEPIRIDE [Concomitant]
     Active Substance: GLIMEPIRIDE
  10. HYDROXYZINE HYDROCHLORIDE [Concomitant]
     Active Substance: HYDROXYZINE HYDROCHLORIDE
  11. LISINOPRIL [Concomitant]
     Active Substance: LISINOPRIL
  12. METOPROLOL SUCCINATE [Concomitant]
     Active Substance: METOPROLOL SUCCINATE
     Dosage: TAB 200MG ER
  13. NIACIN [Concomitant]
     Active Substance: NIACIN
  14. NITROGLYCERIN [Concomitant]
     Active Substance: NITROGLYCERIN
  15. NOVOLOG [Concomitant]
     Active Substance: INSULIN ASPART
     Dosage: INJ FLEXPEN
  16. VENTOLIN HFA [Concomitant]
     Active Substance: ALBUTEROL SULFATE
  17. WARFARIN [Concomitant]
     Active Substance: WARFARIN
  18. WARFARIN [Concomitant]
     Active Substance: WARFARIN
  19. ZETIA [Concomitant]
     Active Substance: EZETIMIBE
  20. CALCIUM\VITAMIN D [Concomitant]
     Active Substance: CALCIUM\VITAMIN D

REACTIONS (2)
  - Product dose omission in error [Unknown]
  - No adverse event [Unknown]
